FAERS Safety Report 6075928-X (Version None)
Quarter: 2009Q1

REPORT INFORMATION
  Report Type: 
  Country: None (occurrence: None)
  Receive Date: 20090212
  Receipt Date: 20090202
  Transmission Date: 20090719
  Serious: Yes (Life-Threatening, Hospitalization)
  Sender: FDA-Public Use
  Company Number: CA-PFIZER INC-2008154792

PATIENT

DRUGS (7)
  1. EXEMESTANE [Suspect]
     Dosage: 25 MG, 1X/DAY
     Route: 048
     Dates: start: 20061127, end: 20081120
  2. AMLODIPINE BESILATE [Concomitant]
     Dosage: UNK
     Route: 048
     Dates: start: 19930101
  3. BUPRENORPHINE [Concomitant]
     Dosage: UNK
     Route: 062
     Dates: start: 20080901, end: 20081120
  4. DILTIAZEM HYDROCHLORIDE [Concomitant]
     Dosage: UNK
     Route: 048
     Dates: start: 19930101
  5. NAPROXEN SODIUM [Concomitant]
     Dosage: UNK
     Route: 048
  6. RISEDRONATE SODIUM [Concomitant]
     Dosage: UNK
     Route: 048
     Dates: start: 20060301
  7. TELMISARTAN [Concomitant]
     Dosage: UNK
     Route: 048
     Dates: start: 19930101

REACTIONS (1)
  - PULMONARY EMBOLISM [None]
